FAERS Safety Report 7854821-3 (Version None)
Quarter: 2011Q4

REPORT INFORMATION
  Report Type: 
  Country: None (occurrence: None)
  Receive Date: 20111026
  Receipt Date: 20111021
  Transmission Date: 20120403
  Serious: Yes (Other)
  Sender: FDA-Public Use
  Company Number: US-BAYER-2011-071986

PATIENT
  Age: 42 Year
  Sex: Male

DRUGS (6)
  1. ACETYLSALICYLIC ACID SRT [Suspect]
  2. BETASERON [Suspect]
     Indication: MULTIPLE SCLEROSIS
     Dosage: 8 MIU, QOD
     Route: 058
     Dates: start: 20060101
  3. PRILOSEC [Concomitant]
     Indication: GASTRIC ULCER
     Dosage: UNK
  4. PLAVIX [Suspect]
     Indication: PROPHYLAXIS
  5. INSULIN [Concomitant]
     Indication: DIABETES MELLITUS
     Dosage: UNK
  6. IBUPROFEN [Suspect]
     Indication: PREMEDICATION
     Dosage: 600 MG, UNK

REACTIONS (12)
  - INJECTION SITE IRRITATION [None]
  - INJECTION SITE INDURATION [None]
  - INJECTION SITE SWELLING [None]
  - SKIN ULCER [None]
  - INJECTION SITE INFECTION [None]
  - INJECTION SITE ULCER [None]
  - MUSCLE SPASMS [None]
  - INJECTION SITE ERYTHEMA [None]
  - INJECTION SITE MASS [None]
  - GASTRIC ULCER [None]
  - INJECTION SITE REACTION [None]
  - INJECTION SITE SCAR [None]
